FAERS Safety Report 7331393-3 (Version None)
Quarter: 2011Q1

REPORT INFORMATION
  Report Type: 
  Country: None (occurrence: None)
  Receive Date: 20110224
  Receipt Date: 20110209
  Transmission Date: 20110831
  Serious: Yes (Hospitalization)
  Sender: FDA-Public Use
  Company Number: 2011000658

PATIENT
  Age: 83 Year
  Sex: Male

DRUGS (5)
  1. LOTREL [Concomitant]
  2. TARCEVA [Suspect]
     Indication: HEPATIC NEOPLASM MALIGNANT
     Dosage: (150 MG, QD, ORAL) (150 MG, QOD, ORAL
     Route: 048
     Dates: start: 20110205, end: 20110209
  3. TARCEVA [Suspect]
     Indication: HEPATIC NEOPLASM MALIGNANT
     Dosage: (150 MG, QD, ORAL) (150 MG, QOD, ORAL
     Route: 048
     Dates: start: 20110211
  4. GLYBURIDE [Concomitant]
  5. NEXAVAR [Concomitant]

REACTIONS (6)
  - DIZZINESS [None]
  - CONFUSIONAL STATE [None]
  - AGITATION [None]
  - BLOOD GLUCOSE ABNORMAL [None]
  - ASTHENIA [None]
  - DELUSIONAL DISORDER, UNSPECIFIED TYPE [None]
